FAERS Safety Report 16970298 (Version 2)
Quarter: 2020Q1

REPORT INFORMATION
  Report Type: Spontaneous
  Country: US (occurrence: US)
  Receive Date: 20191029
  Receipt Date: 20200103
  Transmission Date: 20200409
  Serious: No
  Sender: FDA-Public Use
  Company Number: US-PFIZER INC-2018029844

PATIENT
  Age: 55 Year
  Sex: Female
  Weight: 79 kg

DRUGS (18)
  1. DOCETAXEL. [Suspect]
     Active Substance: DOCETAXEL
     Indication: BREAST CANCER FEMALE
     Dosage: 160 MG, CYCLIC (10 CYCLES, EVERY THREE WEEKS)
     Dates: start: 20091208, end: 20100408
  2. DOCETAXEL ACCORD [Suspect]
     Active Substance: DOCETAXEL
     Indication: BREAST CANCER FEMALE
     Dosage: 160 MG, CYCLIC (10 CYCLES, EVERY THREE WEEKS)
     Dates: start: 20091208, end: 20100408
  3. DOCETAXEL ACCORD [Suspect]
     Active Substance: DOCETAXEL
     Dosage: 160 MG, CYCLIC (10 CYCLES, EVERY THREE WEEKS)
     Dates: start: 20160428, end: 20160721
  4. TAXOTERE [Suspect]
     Active Substance: DOCETAXEL
     Indication: BREAST CANCER FEMALE
     Dosage: 160 MG, CYCLIC (10 CYCLES, EVERY THREE WEEKS)
     Dates: start: 20091208, end: 20100408
  5. DOCETAXEL SANDOZ [Suspect]
     Active Substance: DOCETAXEL
     Dosage: 160 MG, CYCLIC (10 CYCLES, EVERY THREE WEEKS)
     Dates: start: 20160428, end: 20160721
  6. TAXOTERE [Suspect]
     Active Substance: DOCETAXEL
     Dosage: 160 MG, CYCLIC (10 CYCLES, EVERY THREE WEEKS)
     Dates: start: 20160428, end: 20160721
  7. TYLENOL [Concomitant]
     Active Substance: ACETAMINOPHEN
     Dosage: UNK
     Dates: start: 2009, end: 2010
  8. ADRIAMYCIN [Concomitant]
     Active Substance: DOXORUBICIN HYDROCHLORIDE
     Indication: CHEMOTHERAPY
     Dosage: UNK
  9. DOXIL [Concomitant]
     Active Substance: DOXORUBICIN HYDROCHLORIDE
     Indication: CHEMOTHERAPY
     Dosage: UNK
  10. DOCETAXEL SANDOZ [Suspect]
     Active Substance: DOCETAXEL
     Indication: BREAST CANCER FEMALE
     Dosage: 160 MG, CYCLIC (10 CYCLES, EVERY THREE WEEKS)
     Dates: start: 20091208, end: 20100408
  11. DOCETAXEL-SANOFI-AVENTIS [Suspect]
     Active Substance: DOCETAXEL
     Dosage: 160 MG, CYCLIC (10 CYCLES, EVERY THREE WEEKS)
     Dates: start: 20160428, end: 20160721
  12. ALEVE [Concomitant]
     Active Substance: NAPROXEN SODIUM
     Dosage: UNK
     Dates: start: 2010
  13. PARAPLATIN [Concomitant]
     Active Substance: CARBOPLATIN
     Indication: CHEMOTHERAPY
     Dosage: UNK
  14. TAMOXIFEN [Concomitant]
     Active Substance: TAMOXIFEN
     Indication: HORMONE THERAPY
     Dosage: UNK
     Dates: start: 2009, end: 2014
  15. DOCETAXEL. [Suspect]
     Active Substance: DOCETAXEL
     Dosage: 160 MG, CYCLIC (10 CYCLES, EVERY THREE WEEKS)
     Dates: start: 20160428, end: 20160721
  16. DOCETAXEL-SANOFI-AVENTIS [Suspect]
     Active Substance: DOCETAXEL
     Indication: BREAST CANCER FEMALE
     Dosage: 160 MG, CYCLIC (10 CYCLES, EVERY THREE WEEKS)
     Dates: start: 20091208, end: 20100408
  17. NEOSAR [Concomitant]
     Active Substance: CYCLOPHOSPHAMIDE
     Indication: CHEMOTHERAPY
     Dosage: UNK
  18. HERCEPTIN [Concomitant]
     Active Substance: TRASTUZUMAB
     Dosage: UNK

REACTIONS (7)
  - Hair texture abnormal [Not Recovered/Not Resolved]
  - Depression [Unknown]
  - Alopecia [Not Recovered/Not Resolved]
  - Anxiety [Unknown]
  - Hair disorder [Not Recovered/Not Resolved]
  - Hair colour changes [Not Recovered/Not Resolved]
  - Madarosis [Not Recovered/Not Resolved]

NARRATIVE: CASE EVENT DATE: 201010
